FAERS Safety Report 13523933 (Version 1)
Quarter: 2017Q2

REPORT INFORMATION
  Report Type: Spontaneous
  Country: US (occurrence: US)
  Receive Date: 20170508
  Receipt Date: 20170508
  Transmission Date: 20170830
  Serious: No
  Sender: FDA-Public Use
  Company Number: US-VIFOR (INTERNATIONAL) INC.-VIT-2017-02351

PATIENT
  Age: 81 Year
  Sex: Male

DRUGS (13)
  1. SENOKOT [Concomitant]
     Active Substance: SENNOSIDES
  2. ATENOLOL. [Concomitant]
     Active Substance: ATENOLOL
  3. ALLOPURINOL. [Concomitant]
     Active Substance: ALLOPURINOL
  4. VELTASSA [Suspect]
     Active Substance: PATIROMER
     Route: 048
  5. PANTOPRAZOLE SODIUM SESQUIHYDRATE [Concomitant]
     Active Substance: PANTOPRAZOLE SODIUM
  6. LOSARTAN POTASSIUM-HCTZ [Concomitant]
     Active Substance: HYDROCHLOROTHIAZIDE\LOSARTAN POTASSIUM
  7. VITAMIN B COMPLEX [Concomitant]
     Active Substance: CYANOCOBALAMIN\DEXPANTHENOL\NIACINAMIDE\PYRIDOXINE HYDROCHLORIDE\RIBOFLAVIN 5^-PHOSPHATE SODIUM\THIAMINE HYDROCHLORIDE\VITAMIN B COMPLEX
  8. VELTASSA [Suspect]
     Active Substance: PATIROMER
     Indication: HYPERKALAEMIA
     Route: 048
     Dates: start: 20170119
  9. FOLIC ACID. [Concomitant]
     Active Substance: FOLIC ACID
  10. XANAX [Concomitant]
     Active Substance: ALPRAZOLAM
  11. PREDNISONE. [Concomitant]
     Active Substance: PREDNISONE
  12. ACETYLSALICYLIC ACID [Concomitant]
     Active Substance: ASPIRIN
  13. AMLODIPINE BESILATE [Concomitant]
     Active Substance: AMLODIPINE BESYLATE

REACTIONS (3)
  - Product taste abnormal [Unknown]
  - Poor quality drug administered [Unknown]
  - Off label use [Unknown]

NARRATIVE: CASE EVENT DATE: 20170301
